FAERS Safety Report 25570562 (Version 1)
Quarter: 2025Q3

REPORT INFORMATION
  Report Type: Spontaneous
  Country: EU (occurrence: EU)
  Receive Date: 20250717
  Receipt Date: 20250717
  Transmission Date: 20251021
  Serious: Yes (Hospitalization, Other)
  Sender: CHEPLAPHARM
  Company Number: None

PATIENT
  Age: 68 Year
  Sex: Female
  Weight: 88 kg

DRUGS (14)
  1. QUETIAPINE [Suspect]
     Active Substance: QUETIAPINE
     Indication: Bipolar disorder
     Dosage: DAILY DOSE: 300 MILLIGRAM
     Route: 048
     Dates: start: 20241130, end: 20241213
  2. QUETIAPINE [Suspect]
     Active Substance: QUETIAPINE
     Indication: Bipolar disorder
     Dosage: DAILY DOSE: 300 MILLIGRAM
     Route: 048
     Dates: start: 20241224
  3. QUETIAPINE [Suspect]
     Active Substance: QUETIAPINE
     Indication: Bipolar disorder
     Dosage: DAILY DOSE: 300 MILLIGRAM
     Route: 048
     Dates: end: 20241127
  4. TERALITHE [Suspect]
     Active Substance: LITHIUM CARBONATE
     Indication: Bipolar disorder
     Dosage: 1-0-1.5?DAILY DOSE: 625 MILLIGRAM
     Route: 048
     Dates: start: 20241130, end: 20241213
  5. TERALITHE [Suspect]
     Active Substance: LITHIUM CARBONATE
     Indication: Bipolar disorder
     Dosage: 1-0-1.5?DAILY DOSE: 625 MILLIGRAM
     Route: 048
     Dates: end: 20241127
  6. DEPAKOTE [Suspect]
     Active Substance: DIVALPROEX SODIUM
     Indication: Bipolar disorder
     Dosage: 1-0-2?DAILY DOSE: 750 MILLIGRAM
     Route: 048
     Dates: start: 20241130, end: 20241213
  7. DEPAKOTE [Suspect]
     Active Substance: DIVALPROEX SODIUM
     Indication: Bipolar disorder
     Dosage: 1-0-2?DAILY DOSE: 750 MILLIGRAM
     Route: 048
     Dates: end: 20241127
  8. KARDEGIC [Concomitant]
     Active Substance: ASPIRIN DL-LYSINE
     Dosage: DAILY DOSE: 75 MILLIGRAM
     Route: 048
  9. BISOPROLOL FUMARATE [Concomitant]
     Active Substance: BISOPROLOL FUMARATE
     Dosage: 1-0-0?DAILY DOSE: 5 MILLIGRAM
     Route: 048
  10. EMPAGLIFLOZIN [Concomitant]
     Active Substance: EMPAGLIFLOZIN
     Dosage: 1-0-0?DAILY DOSE: 10 MILLIGRAM
     Route: 048
  11. ROSUVASTATIN [Concomitant]
     Active Substance: ROSUVASTATIN
     Dosage: 0-0-1?DAILY DOSE: 10 MILLIGRAM
     Route: 048
  12. METFORMIN [Concomitant]
     Active Substance: METFORMIN HYDROCHLORIDE
     Dosage: 1-0-2?DAILY DOSE: 1500 MILLIGRAM
     Route: 048
  13. MELATONIN [Concomitant]
     Active Substance: MELATONIN
     Dosage: 0-0-1?DAILY DOSE: 2 MILLIGRAM
     Route: 048
  14. TRELEGY ELLIPTA [Concomitant]
     Active Substance: FLUTICASONE FUROATE\UMECLIDINIUM BROMIDE\VILANTEROL TRIFENATATE
     Route: 055

REACTIONS (4)
  - Encephalopathy [Recovered/Resolved]
  - Varicella zoster virus infection [Recovered/Resolved]
  - Sepsis [Recovered/Resolved]
  - Lung disorder [Unknown]

NARRATIVE: CASE EVENT DATE: 20241127
